FAERS Safety Report 18696768 (Version 1)
Quarter: 2021Q1

REPORT INFORMATION
  Report Type: Other
  Country: US (occurrence: US)
  Receive Date: 20210104
  Receipt Date: 20210104
  Transmission Date: 20210419
  Serious: No
  Sender: FDA-Public Use
  Company Number: US-ROCHE-2604696

PATIENT
  Age: 39 Year
  Sex: Male

DRUGS (7)
  1. TOCILIZUMAB. [Suspect]
     Active Substance: TOCILIZUMAB
     Indication: COVID-19
     Route: 065
  2. HYDROXYCHLOROQUINE [Concomitant]
     Active Substance: HYDROXYCHLOROQUINE
  3. ALTEPLASE. [Suspect]
     Active Substance: ALTEPLASE
     Indication: COVID-19
     Dosage: 25MG BOLUS OVER 2 HOURS, WITH AN ADDITIONAL 25 MG INFUSED OVER THE FOLLOWING 22 HOURS
     Route: 040
  4. CEFTRIAXONE. [Concomitant]
     Active Substance: CEFTRIAXONE
  5. AZITHROMYCIN ANHYDROUS. [Concomitant]
     Active Substance: AZITHROMYCIN ANHYDROUS
  6. ALTEPLASE. [Suspect]
     Active Substance: ALTEPLASE
     Dosage: OVER 2 HOURS
     Route: 040
  7. HEPARIN [Concomitant]
     Active Substance: HEPARIN SODIUM
     Dosage: 500 MICRON/HOUR

REACTIONS (3)
  - No adverse event [Unknown]
  - Intentional product use issue [Unknown]
  - Off label use [Unknown]
